FAERS Safety Report 8323016-1 (Version None)
Quarter: 2012Q2

REPORT INFORMATION
  Report Type: 
  Country: None (occurrence: None)
  Receive Date: 20120426
  Receipt Date: 20120414
  Transmission Date: 20120825
  Serious: Yes (Hospitalization)
  Sender: FDA-Public Use
  Company Number: UCM201204-000039

PATIENT
  Age: 62 Year
  Sex: Female

DRUGS (1)
  1. LAMOTRIGINE [Suspect]
     Dosage: 21 DAYS

REACTIONS (5)
  - ASPARTATE AMINOTRANSFERASE INCREASED [None]
  - DRUG RASH WITH EOSINOPHILIA AND SYSTEMIC SYMPTOMS [None]
  - RASH MORBILLIFORM [None]
  - BLOOD LACTATE DEHYDROGENASE INCREASED [None]
  - ALANINE AMINOTRANSFERASE INCREASED [None]
